FAERS Safety Report 9419383 (Version 1)
Quarter: 2013Q3

REPORT INFORMATION
  Report Type: Report from Study
  Country: US (occurrence: US)
  Receive Date: 20130725
  Receipt Date: 20130725
  Transmission Date: 20140515
  Serious: Yes (Hospitalization)
  Sender: FDA-Public Use
  Company Number: US-BAYER-2013-087597

PATIENT
  Age: 72 Year
  Sex: Female

DRUGS (2)
  1. BETASERON [Suspect]
     Indication: MULTIPLE SCLEROSIS
     Dosage: UNK
     Dates: start: 19990624, end: 20060707
  2. BETASERON [Suspect]
     Indication: MULTIPLE SCLEROSIS
     Dosage: 8 MIU, UNK
     Route: 058
     Dates: start: 20080116, end: 20130709

REACTIONS (5)
  - Confusional state [Recovered/Resolved]
  - Dizziness [Recovered/Resolved]
  - Myalgia [Not Recovered/Not Resolved]
  - Acrochordon [Not Recovered/Not Resolved]
  - Blood glucose increased [Recovered/Resolved]
